FAERS Safety Report 9865560 (Version 1)
Quarter: 2014Q1

REPORT INFORMATION
  Report Type: Spontaneous
  Country: US (occurrence: US)
  Receive Date: 20140203
  Receipt Date: 20140203
  Transmission Date: 20141002
  Serious: No
  Sender: FDA-Public Use
  Company Number: US-ALLERGAN-1305663US

PATIENT
  Age: 57 Year
  Sex: Female

DRUGS (9)
  1. RESTASIS [Suspect]
     Indication: DRY EYE
     Dosage: 2 GTT, SINGLE
     Route: 047
     Dates: start: 20130416
  2. PILOCARPINE [Concomitant]
     Indication: DRY MOUTH
     Dosage: UNK
     Dates: start: 201212
  3. METHOTREXATE [Concomitant]
     Indication: POLYARTHRITIS
     Dosage: 0.4 ML, Q WEEK
     Route: 058
     Dates: start: 201212
  4. HYDROCHLOROQUINE [Concomitant]
     Indication: POLYARTHRITIS
     Dosage: 200 MG, QAM
     Dates: start: 201212
  5. DAYPRO [Concomitant]
     Indication: POLYARTHRITIS
     Dosage: 600 MG, QHS
  6. TYLENOL EXTRA STRENGTH [Concomitant]
     Indication: POLYARTHRITIS
     Dosage: UNK UNK, PRN
  7. A RUB THE PATIENT HAS COMPOUNDED [Concomitant]
     Indication: JOINT SWELLING
     Dosage: UNK
     Route: 061
  8. VITAMIN D                          /00107901/ [Concomitant]
     Indication: VITAMIN D DEFICIENCY
     Dosage: 2000 UNITS, QD
     Route: 048
  9. FOLIC ACID [Concomitant]
     Indication: VITAMIN SUPPLEMENTATION
     Dosage: UNK UNK, QD
     Route: 048

REACTIONS (2)
  - Expired drug administered [Unknown]
  - Eye irritation [Recovered/Resolved]
